FAERS Safety Report 22341686 (Version 1)
Quarter: 2023Q2

REPORT INFORMATION
  Report Type: Spontaneous
  Country: US (occurrence: US)
  Receive Date: 20230518
  Receipt Date: 20230518
  Transmission Date: 20230722
  Serious: No
  Sender: FDA-Public Use
  Company Number: US-GALDERMA-US2023004581

PATIENT

DRUGS (8)
  1. PROACTIV MD ADAPALENE ACNE TREATMENT [Suspect]
     Active Substance: ADAPALENE
     Indication: Acne
     Dosage: 1 DOSAGE FORM, QD, ONCE A DAY, VERY SMALL AMOUNT
     Route: 061
     Dates: start: 202302, end: 202303
  2. Proactiv MD Ultra Gentle Cleanser [Concomitant]
     Indication: Acne
     Dosage: 1 DOSAGE FORM, DIME SIZED AMOUNT, 2 OR MORE TIMES A DAY
     Route: 061
     Dates: start: 202302, end: 202303
  3. Proactiv MD Ultra Hydrating Moisturizer [Concomitant]
     Indication: Acne
     Dosage: 1 DOSAGE FORM, DIME SIZED AMOUNT, 2 OR MORE TIMES A DAY
     Route: 061
     Dates: start: 202302, end: 202303
  4. PROACTIV BLACKHEAD DISSOLVING [Concomitant]
     Active Substance: SALICYLIC ACID
     Indication: Acne
     Dosage: 1 DOSAGE FORM, DIME SIZED AMOUNT, 2 OR MORE TIMES A DAY
     Route: 061
     Dates: start: 202302, end: 202303
  5. Proactiv Post Acne Dark Mark Relief [Concomitant]
     Indication: Acne
     Dosage: 1 DOSAGE FORM, DIME SIZED AMOUNT, 2 OR MORE TIMES A DAY
     Route: 061
     Dates: start: 202302, end: 202303
  6. Proactiv Post Acne Scar Gel [Concomitant]
     Indication: Acne
     Dosage: 1 DOSAGE FORM, DIME SIZED AMOUNT, 2 OR MORE TIMES A DAY
     Route: 061
     Dates: start: 202302, end: 202303
  7. PROACTIV ACNE BODY WASH [Concomitant]
     Active Substance: SALICYLIC ACID
     Indication: Acne
     Dosage: 1 DOSAGE FORM, DIME SIZED AMOUNT, 2 OR MORE TIMES A DAY
     Route: 061
     Dates: start: 202302, end: 202303
  8. VITAMINS [Concomitant]
     Active Substance: VITAMINS
     Indication: Product used for unknown indication
     Dosage: UNK
     Route: 065

REACTIONS (4)
  - Rash papular [Recovered/Resolved]
  - Pain of skin [Recovered/Resolved]
  - Hypersensitivity [Recovered/Resolved]
  - Skin burning sensation [Recovered/Resolved]

NARRATIVE: CASE EVENT DATE: 20230101
